FAERS Safety Report 5168928-5 (Version None)
Quarter: 2006Q4

REPORT INFORMATION
  Report Type: 
  Country: None (occurrence: None)
  Receive Date: 20061211
  Receipt Date: 20061207
  Transmission Date: 20070319
  Serious: Yes (Death)
  Sender: FDA-Public Use
  Company Number: JP-AVENTIS-200613831JP

PATIENT
  Age: 73 Year
  Sex: Male
  Weight: 51.5 kg

DRUGS (6)
  1. KETEK [Suspect]
     Indication: PNEUMONIA
     Route: 048
     Dates: start: 20061205, end: 20061205
  2. BUFFERIN                           /00002701/ [Concomitant]
  3. MAGNESIUM OXIDE [Concomitant]
  4. NITRODERM [Concomitant]
  5. SENNARIDE [Concomitant]
  6. LENDORMIN [Concomitant]

REACTIONS (1)
  - ANAPHYLACTIC SHOCK [None]
